FAERS Safety Report 15905046 (Version 3)
Quarter: 2019Q3

REPORT INFORMATION
  Report Type: Spontaneous
  Country: US (occurrence: US)
  Receive Date: 20190204
  Receipt Date: 20190719
  Transmission Date: 20191004
  Serious: No
  Sender: FDA-Public Use
  Company Number: US-BAYER-2019-024698

PATIENT
  Age: 51 Year
  Sex: Female

DRUGS (1)
  1. CLIMARA PRO [Suspect]
     Active Substance: ESTRADIOL\LEVONORGESTREL
     Indication: MENOPAUSAL SYMPTOMS
     Dosage: UNK
     Route: 062
     Dates: start: 20190124

REACTIONS (13)
  - Wrong technique in product usage process [Not Recovered/Not Resolved]
  - Device breakage [None]
  - Application site pain [None]
  - Product adhesion issue [None]
  - Product adhesion issue [None]
  - Application site hypersensitivity [Not Recovered/Not Resolved]
  - Product quality issue [None]
  - Product physical issue [None]
  - Application site pruritus [Not Recovered/Not Resolved]
  - Application site erythema [Not Recovered/Not Resolved]
  - Product size issue [Not Recovered/Not Resolved]
  - Product administration interrupted [None]
  - Device material issue [None]

NARRATIVE: CASE EVENT DATE: 20190124
